FAERS Safety Report 17735934 (Version 5)
Quarter: 2020Q3

REPORT INFORMATION
  Report Type: Spontaneous
  Country: US (occurrence: US)
  Receive Date: 20200501
  Receipt Date: 20200910
  Transmission Date: 20201102
  Serious: Yes (Death, Other)
  Sender: FDA-Public Use
  Company Number: NVSC2020US117328

PATIENT
  Sex: Female
  Weight: 10 kg

DRUGS (2)
  1. KYMRIAH [Suspect]
     Active Substance: TISAGENLECLEUCEL
     Dosage: 41 ML
     Route: 065
     Dates: start: 20200414, end: 20200414
  2. KYMRIAH [Suspect]
     Active Substance: TISAGENLECLEUCEL
     Indication: ACUTE LYMPHOCYTIC LEUKAEMIA
     Dosage: UNK
     Route: 065
     Dates: end: 20200414

REACTIONS (10)
  - Oxygen saturation decreased [Recovering/Resolving]
  - Leukaemia [Fatal]
  - Cytokine release syndrome [Fatal]
  - Bacteraemia [Recovering/Resolving]
  - White blood cell disorder [Recovering/Resolving]
  - Pyrexia [Fatal]
  - Malignant neoplasm progression [Recovering/Resolving]
  - Sepsis [Fatal]
  - Acute lymphocytic leukaemia [Recovering/Resolving]
  - Coagulopathy [Recovering/Resolving]
